FAERS Safety Report 4618947-X (Version None)
Quarter: 2005Q2

REPORT INFORMATION
  Report Type: 
  Country: None (occurrence: None)
  Receive Date: 20050302
  Receipt Date: 20040715
  Transmission Date: 20051028
  Serious: Yes (Hospitalization, Other)
  Sender: FDA-Public Use
  Company Number: 200215777BWH

PATIENT
  Age: 81 Year
  Sex: Male

DRUGS (1)
  1. TRASYLOL [Suspect]
     Indication: VASCULAR BYPASS GRAFT
     Dosage: INTRAVENOUS
     Route: 042

REACTIONS (2)
  - ANAPHYLACTIC REACTION [None]
  - HYPOTENSION [None]
